FAERS Safety Report 9052875 (Version 2)
Quarter: 2013Q1

REPORT INFORMATION
  Report Type: Spontaneous
  Country: US (occurrence: US)
  Receive Date: 20130207
  Receipt Date: 20130308
  Transmission Date: 20140127
  Serious: No
  Sender: FDA-Public Use
  Company Number: US-ASTRAZENECA-2013SE05827

PATIENT
  Sex: Female

DRUGS (3)
  1. SYMBICORT PMDI [Suspect]
     Dosage: 80/4.5 UNKNOWN
     Route: 055
  2. SYMBICORT PMDI [Suspect]
     Dosage: 120 UNKNOWN
     Route: 055
  3. SYMBICORT PMDI [Suspect]
     Dosage: 160 MCG BID
     Route: 055

REACTIONS (1)
  - Dysgeusia [Unknown]
